FAERS Safety Report 23810273 (Version 3)
Quarter: 2024Q2

REPORT INFORMATION
  Report Type: Spontaneous
  Country: CH (occurrence: CH)
  Receive Date: 20240502
  Receipt Date: 20240628
  Transmission Date: 20240716
  Serious: Yes (Hospitalization)
  Sender: FDA-Public Use
  Company Number: CH-ELI_LILLY_AND_COMPANY-CH202404018119

PATIENT
  Age: 33 Year
  Sex: Male
  Weight: 83.8 kg

DRUGS (3)
  1. TALTZ [Suspect]
     Active Substance: IXEKIZUMAB
     Indication: Axial spondyloarthritis
     Dosage: 160 MG, SINGLE, LOADING DOSE
     Route: 058
     Dates: start: 20240222, end: 20240222
  2. TALTZ [Suspect]
     Active Substance: IXEKIZUMAB
     Dosage: 80 MG, UNKNOWN
     Route: 058
     Dates: start: 20240321, end: 20240418
  3. VITAMIN D3 [Concomitant]
     Active Substance: CHOLECALCIFEROL
     Indication: Vitamin D deficiency
     Dosage: 0.5 ML, UNKNOWN
     Route: 048

REACTIONS (5)
  - Rhabdomyolysis [Recovered/Resolved]
  - Anxiety disorder [Unknown]
  - Depression [Unknown]
  - Sleep disorder [Unknown]
  - Weight decreased [Unknown]

NARRATIVE: CASE EVENT DATE: 20240328
